FAERS Safety Report 17828672 (Version 1)
Quarter: 2020Q2

REPORT INFORMATION
  Report Type: Spontaneous
  Country: US (occurrence: US)
  Receive Date: 20200527
  Receipt Date: 20200527
  Transmission Date: 20200714
  Serious: No
  Sender: FDA-Public Use
  Company Number: None

PATIENT
  Age: 61 Year
  Sex: Male

DRUGS (1)
  1. CARBAMAZEPINE (CARBAMAZEPINE 200MG TAB) [Suspect]
     Active Substance: CARBAMAZEPINE
     Indication: HEPATITIS CHOLESTATIC
     Dates: start: 20200311, end: 20200419

REACTIONS (8)
  - Hepatitis [None]
  - Malaise [None]
  - Liver function test increased [None]
  - Chills [None]
  - Bile duct obstruction [None]
  - Hepatotoxicity [None]
  - Asthenia [None]
  - Hyperhidrosis [None]

NARRATIVE: CASE EVENT DATE: 20200419
